FAERS Safety Report 10523751 (Version 1)
Quarter: 2014Q4

REPORT INFORMATION
  Report Type: Report from Study
  Country: DE (occurrence: DE)
  Receive Date: 20141017
  Receipt Date: 20141017
  Transmission Date: 20150528
  Serious: Yes (Hospitalization)
  Sender: FDA-Public Use
  Company Number: DE-ROCHE-1475883

PATIENT
  Age: 56 Year
  Sex: Female
  Weight: 98 kg

DRUGS (6)
  1. BISOPROLOL [Concomitant]
     Active Substance: BISOPROLOL
     Indication: HYPERTENSION
     Dosage: LAST DOSE PRIOR TO SAE: 20/SEP/2013
     Route: 048
  2. FRAGMIN P FORTE [Concomitant]
     Active Substance: DALTEPARIN SODIUM
     Indication: PROPHYLAXIS
     Route: 065
     Dates: start: 20130106
  3. PACLITAXEL. [Suspect]
     Active Substance: PACLITAXEL
     Indication: OVARIAN CANCER
     Dosage: LAST DOSE PRIOR TO SAE: 12/SEP/2013
     Route: 042
     Dates: start: 20130106
  4. BEVACIZUMAB [Suspect]
     Active Substance: BEVACIZUMAB
     Indication: OVARIAN CANCER
     Dosage: LAST DOSE PRIOR TO SAE: 12/SEP/2013
     Route: 042
     Dates: start: 20130127
  5. NEUPOGEN [Concomitant]
     Active Substance: FILGRASTIM
     Indication: LEUKOPENIA
     Dosage: LAST DOSE PRIOR TO SAE: 19/SEP/2013
     Route: 058
     Dates: start: 20130916
  6. CARBOPLATIN. [Suspect]
     Active Substance: CARBOPLATIN
     Indication: OVARIAN CANCER
     Dosage: LAST DOSE PRIOR TO SAE: 12/SEP/2013
     Route: 042
     Dates: start: 20130106

REACTIONS (1)
  - General physical health deterioration [Recovered/Resolved]

NARRATIVE: CASE EVENT DATE: 20130920
